FAERS Safety Report 7268731-6 (Version None)
Quarter: 2011Q1

REPORT INFORMATION
  Report Type: 
  Country: None (occurrence: None)
  Receive Date: 20110201
  Receipt Date: 20110131
  Transmission Date: 20110831
  Serious: Yes (Other)
  Sender: FDA-Public Use
  Company Number: MD-ROXANE LABORATORIES, INC.-2011-RO-00124RO

PATIENT
  Age: 48 Year
  Sex: Male

DRUGS (3)
  1. TOPIRAMATE [Concomitant]
     Indication: GRAND MAL CONVULSION
  2. LEVETIRACETAM [Suspect]
     Indication: GRAND MAL CONVULSION
     Dosage: 2 G
  3. CLONAZEPAM [Concomitant]
     Indication: GRAND MAL CONVULSION

REACTIONS (1)
  - CONVULSION [None]
